FAERS Safety Report 4985234-X (Version None)
Quarter: 2006Q2

REPORT INFORMATION
  Report Type: 
  Country: None (occurrence: None)
  Receive Date: 20060427
  Receipt Date: 20051003
  Transmission Date: 20061013
  Serious: Yes (Hospitalization, Disabling, Other)
  Sender: FDA-Public Use
  Company Number: US-MERCK-0510USA02909

PATIENT
  Sex: Female
  Weight: 99 kg

DRUGS (5)
  1. VIOXX [Suspect]
     Indication: PAIN
     Route: 048
  2. VIOXX [Suspect]
     Route: 048
  3. VIOXX [Suspect]
     Indication: OSTEOARTHRITIS
     Route: 048
  4. VIOXX [Suspect]
     Route: 048
  5. CELEBREX [Suspect]
     Route: 065

REACTIONS (22)
  - BACK DISORDER [None]
  - CARDIAC DISORDER [None]
  - CARDIAC FAILURE CONGESTIVE [None]
  - CARDIAC MURMUR [None]
  - CARDIAC OPERATION [None]
  - CARDIOMEGALY [None]
  - CARDIOVASCULAR DISORDER [None]
  - DEPRESSION [None]
  - DIABETES MELLITUS [None]
  - EMOTIONAL DISTRESS [None]
  - EYE DISORDER [None]
  - GALLBLADDER OPERATION [None]
  - GENERAL SYMPTOM [None]
  - HEART RATE ABNORMAL [None]
  - HEART VALVE INSUFFICIENCY [None]
  - KNEE ARTHROPLASTY [None]
  - LUNG DISORDER [None]
  - MUSCULOSKELETAL DISORDER [None]
  - MYOCARDIAL INFARCTION [None]
  - NERVOUSNESS [None]
  - OBSTRUCTION [None]
  - RENAL INJURY [None]
